FAERS Safety Report 15379126 (Version 1)
Quarter: 2018Q3

REPORT INFORMATION
  Report Type: Spontaneous
  Country: US (occurrence: US)
  Receive Date: 20180906
  Receipt Date: 20180906
  Transmission Date: 20181010
  Serious: No
  Sender: FDA-Public Use
  Company Number: None

PATIENT
  Age: 40 Year
  Sex: Female
  Weight: 113.4 kg

DRUGS (8)
  1. TEMAZEPAM. [Concomitant]
     Active Substance: TEMAZEPAM
  2. SIMVASTATIN. [Concomitant]
     Active Substance: SIMVASTATIN
  3. TYLENOL [Concomitant]
     Active Substance: ACETAMINOPHEN
  4. TENORMIN [Concomitant]
     Active Substance: ATENOLOL
  5. NAPROXEN. [Concomitant]
     Active Substance: NAPROXEN
  6. MULTI?VITAMIN SUPPLEMENT [Concomitant]
     Active Substance: VITAMINS
  7. CHANTIX [Suspect]
     Active Substance: VARENICLINE TARTRATE
     Indication: SMOKING CESSATION THERAPY
     Dosage: ?          QUANTITY:1 DF DOSAGE FORM;?1 PILL TWICE DAILY BY MOUTH
     Route: 048
     Dates: start: 20131130, end: 20131209
  8. IBUPROFEN. [Concomitant]
     Active Substance: IBUPROFEN

REACTIONS (6)
  - Hostility [None]
  - Aggression [None]
  - Hallucination, visual [None]
  - Hallucination, auditory [None]
  - Suicidal ideation [None]
  - Homicide [None]

NARRATIVE: CASE EVENT DATE: 20131209
